FAERS Safety Report 9782653 (Version 3)
Quarter: 2014Q1

REPORT INFORMATION
  Report Type: Spontaneous
  Country: JP (occurrence: JP)
  Receive Date: 20131226
  Receipt Date: 20140102
  Transmission Date: 20141002
  Serious: Yes (Hospitalization, Other)
  Sender: FDA-Public Use
  Company Number: JP-JNJFOC-20130214260

PATIENT
  Age: 34 Year
  Sex: Male
  Weight: 50 kg

DRUGS (14)
  1. REMICADE [Suspect]
     Indication: CROHN^S DISEASE
     Route: 042
     Dates: start: 20090227
  2. REMICADE [Suspect]
     Indication: CROHN^S DISEASE
     Route: 042
     Dates: start: 20111021
  3. REMICADE [Suspect]
     Indication: CROHN^S DISEASE
     Dosage: THE PATIENT HAD RECEIVED TWENTY SIXTH DOSE OF INFLIXIMAB, RECOMBINANT.
     Route: 042
     Dates: start: 20130110
  4. REMICADE [Suspect]
     Indication: CROHN^S DISEASE
     Route: 042
     Dates: start: 20120405
  5. REMICADE [Suspect]
     Indication: CROHN^S DISEASE
     Route: 042
     Dates: start: 20090604
  6. REMICADE [Suspect]
     Indication: CROHN^S DISEASE
     Route: 042
     Dates: start: 20090409
  7. REMICADE [Suspect]
     Indication: CROHN^S DISEASE
     Route: 042
     Dates: start: 20090312
  8. LOPERAMIDE HYDROCHLORIDE [Concomitant]
     Indication: CROHN^S DISEASE
     Dosage: IN THE MORNING AND EVENING
     Route: 048
     Dates: start: 20090312
  9. IRRIBOW [Concomitant]
     Indication: CROHN^S DISEASE
     Dosage: IN THE MORNING
     Route: 048
     Dates: start: 20130723
  10. VITAMEDIN [Concomitant]
     Indication: HYPOVITAMINOSIS
     Dosage: AFTER EVERY MEAL
     Route: 048
     Dates: start: 20110512
  11. CIPROFLOXACIN HYDROCHLORIDE [Concomitant]
     Indication: ANAL ABSCESS
     Route: 048
     Dates: start: 20131021
  12. PENTASA [Concomitant]
     Indication: CROHN^S DISEASE
     Dosage: IN THE MORNING AND EVENING
     Route: 048
  13. BIOFERMIN [Concomitant]
     Indication: CROHN^S DISEASE
     Dosage: IN THE MORNING AND EVENING
     Route: 048
  14. ELENTAL [Concomitant]
     Indication: CROHN^S DISEASE
     Dosage: IN MORNING AND EVENING

REACTIONS (2)
  - Guillain-Barre syndrome [Recovering/Resolving]
  - Respiratory disorder [Unknown]
